FAERS Safety Report 21351973 (Version 5)
Quarter: 2022Q4

REPORT INFORMATION
  Report Type: Report from Study
  Country: JP (occurrence: JP)
  Receive Date: 20220920
  Receipt Date: 20221202
  Transmission Date: 20230113
  Serious: Yes (Hospitalization, Other)
  Sender: FDA-Public Use
  Company Number: JP-SA-2022SA332192

PATIENT
  Age: 74 Year
  Sex: Male
  Weight: 49 kg

DRUGS (11)
  1. ALEMTUZUMAB [Suspect]
     Active Substance: ALEMTUZUMAB
     Indication: T-cell prolymphocytic leukaemia
     Dosage: 30 MG, TIW
     Route: 041
     Dates: start: 20220411, end: 20220427
  2. ALEMTUZUMAB [Suspect]
     Active Substance: ALEMTUZUMAB
     Dosage: DAILY DOSE: 3 MG
     Route: 041
     Dates: start: 20220404, end: 20220404
  3. ALEMTUZUMAB [Suspect]
     Active Substance: ALEMTUZUMAB
     Dosage: DAILY DOSE: 10 MG
     Route: 041
     Dates: start: 20220405, end: 20220405
  4. ALEMTUZUMAB [Suspect]
     Active Substance: ALEMTUZUMAB
     Dosage: DAILY DOSE: 30 MG
     Route: 041
     Dates: start: 20220406, end: 20220406
  5. SOLU-CORTEF [Concomitant]
     Active Substance: HYDROCORTISONE SODIUM SUCCINATE
     Indication: Prophylaxis
     Dosage: DAILY DOSE: 200 MG
     Route: 042
     Dates: start: 20220404, end: 20220427
  6. CANCIDAS [Concomitant]
     Active Substance: CASPOFUNGIN ACETATE
     Indication: Infection prophylaxis
     Dosage: DAILY DOSE: 50 MG
     Route: 042
     Dates: end: 20220511
  7. RESTAMIN [DIPHENHYDRAMINE HYDROCHLORIDE] [Concomitant]
     Indication: Prophylaxis
     Dosage: DAILY DOSE: 50 MG
     Route: 048
     Dates: start: 20220404, end: 20220427
  8. CALONAL [Concomitant]
     Active Substance: ACETAMINOPHEN
     Indication: Prophylaxis
     Dosage: DAILY DOSE: 600 MG
     Route: 048
     Dates: start: 20220404, end: 20220427
  9. LEVOFLOXACIN HEMIHYDRATE [Concomitant]
     Active Substance: LEVOFLOXACIN
     Indication: Infection prophylaxis
     Dosage: DAILY DOSE: 500 MG
     Route: 048
     Dates: end: 20220425
  10. ZOVIRAX [Concomitant]
     Active Substance: ACYCLOVIR
     Indication: Infection prophylaxis
     Dosage: DAILY DOSE: 200 MG
     Route: 048
     Dates: end: 20220508
  11. SULFAMETHOXAZOLE\TRIMETHOPRIM [Concomitant]
     Active Substance: SULFAMETHOXAZOLE\TRIMETHOPRIM
     Indication: Infection prophylaxis
     Dosage: DAILY DOSE: 2 TABLETS
     Route: 048
     Dates: end: 20220508

REACTIONS (6)
  - Cytomegalovirus infection reactivation [Not Recovered/Not Resolved]
  - Clostridium difficile colitis [Not Recovered/Not Resolved]
  - Faeces soft [Not Recovered/Not Resolved]
  - Sepsis [Not Recovered/Not Resolved]
  - Platelet count decreased [Not Recovered/Not Resolved]
  - Anaemia [Not Recovered/Not Resolved]

NARRATIVE: CASE EVENT DATE: 20220425
